FAERS Safety Report 18882535 (Version 2)
Quarter: 2021Q1

REPORT INFORMATION
  Report Type: Spontaneous
  Country: US (occurrence: US)
  Receive Date: 20210212
  Receipt Date: 20210217
  Transmission Date: 20210420
  Serious: Yes (Other)
  Sender: FDA-Public Use
  Company Number: US-ASTRAZENECA-2021A035929

PATIENT
  Age: 23498 Day
  Sex: Male
  Weight: 96.6 kg

DRUGS (2)
  1. BYDUREON [Suspect]
     Active Substance: EXENATIDE
     Indication: TYPE 2 DIABETES MELLITUS
     Route: 058
     Dates: end: 202012
  2. BYDUREON BCISE [Suspect]
     Active Substance: EXENATIDE
     Indication: TYPE 2 DIABETES MELLITUS
     Route: 058
     Dates: start: 202101

REACTIONS (7)
  - Radiation injury [Recovered/Resolved]
  - Weight decreased [Not Recovered/Not Resolved]
  - Injection site discolouration [Recovered/Resolved]
  - Product dose omission issue [Recovered/Resolved]
  - Colorectal cancer stage III [Not Recovered/Not Resolved]
  - Device delivery system issue [Unknown]
  - Needle issue [Unknown]

NARRATIVE: CASE EVENT DATE: 202101
